FAERS Safety Report 18457225 (Version 1)
Quarter: 2020Q4

REPORT INFORMATION
  Report Type: Spontaneous
  Country: SE (occurrence: SE)
  Receive Date: 20201103
  Receipt Date: 20201103
  Transmission Date: 20210114
  Serious: Yes (Other)
  Sender: FDA-Public Use
  Company Number: SE-BAYER-2020-229387

PATIENT
  Age: 20 Year
  Sex: Female
  Weight: 60 kg

DRUGS (1)
  1. KYLEENA [Suspect]
     Active Substance: LEVONORGESTREL
     Indication: CONTRACEPTION
     Dosage: 17.5 ?G PER DAY,  CONTINUOUSLY
     Route: 015
     Dates: end: 20200824

REACTIONS (7)
  - Anxiety [Recovered/Resolved]
  - Depressed mood [Recovered/Resolved]
  - Libido decreased [Recovered/Resolved]
  - Fungal infection [Recovered/Resolved]
  - Breast pain [Recovered/Resolved]
  - Dysmenorrhoea [Recovered/Resolved]
  - Emotional disorder [Recovered/Resolved]

NARRATIVE: CASE EVENT DATE: 201712
